FAERS Safety Report 20876341 (Version 4)
Quarter: 2022Q2

REPORT INFORMATION
  Report Type: Report from Study
  Country: JP (occurrence: JP)
  Receive Date: 20220526
  Receipt Date: 20220621
  Transmission Date: 20220721
  Serious: Yes (Death, Hospitalization, Other)
  Sender: FDA-Public Use
  Company Number: JP-BRISTOL-MYERS SQUIBB COMPANY-BMS-2021-087713

PATIENT
  Age: 37 Year
  Sex: Male
  Weight: 52 kg

DRUGS (17)
  1. YERVOY [Suspect]
     Active Substance: IPILIMUMAB
     Indication: Non-small cell lung cancer recurrent
     Dosage: UNK
     Route: 041
     Dates: start: 20210615, end: 20210615
  2. YERVOY [Suspect]
     Active Substance: IPILIMUMAB
  3. OPDIVO [Suspect]
     Active Substance: NIVOLUMAB
     Indication: Non-small cell lung cancer recurrent
     Dosage: UNK
     Route: 041
     Dates: start: 20210615, end: 20210615
  4. OPDIVO [Suspect]
     Active Substance: NIVOLUMAB
  5. CARBOPLATIN [Suspect]
     Active Substance: CARBOPLATIN
     Indication: Non-small cell lung cancer recurrent
     Dosage: UNK
     Route: 065
     Dates: start: 20210615, end: 20210615
  6. CARBOPLATIN [Suspect]
     Active Substance: CARBOPLATIN
  7. PACLITAXEL [Suspect]
     Active Substance: PACLITAXEL
     Indication: Non-small cell lung cancer recurrent
     Dosage: UNK
     Route: 065
     Dates: start: 20210615, end: 20210615
  8. PACLITAXEL [Suspect]
     Active Substance: PACLITAXEL
  9. CARBOCYSTEINE [Concomitant]
     Active Substance: CARBOCYSTEINE
     Indication: Product used for unknown indication
     Dosage: 500 MG, Q8H
     Route: 048
  10. CARBOCYSTEINE [Concomitant]
     Active Substance: CARBOCYSTEINE
     Dosage: 500 MILLIGRAM, TID
     Route: 048
  11. EDOXABAN TOSYLATE [Concomitant]
     Active Substance: EDOXABAN TOSYLATE
     Indication: Product used for unknown indication
     Dosage: 30 MG, EVERYDAY
     Route: 048
  12. EDOXABAN TOSYLATE [Concomitant]
     Active Substance: EDOXABAN TOSYLATE
     Dosage: 30 MILLIGRAM, QD
     Route: 048
  13. SYMPROIC [Concomitant]
     Active Substance: NALDEMEDINE
     Indication: Prophylaxis
     Dosage: 0.2 MG, EVERYDAY
     Route: 048
  14. SYMPROIC [Concomitant]
     Active Substance: NALDEMEDINE
     Dosage: 0.2 MILLIGRAM, QD
     Route: 048
  15. OXYCONTIN [Concomitant]
     Active Substance: OXYCODONE HYDROCHLORIDE
     Indication: Product used for unknown indication
     Dosage: 50 MG, EVERYDAY
     Route: 048
  16. BISOPROLOL FUMARATE [Concomitant]
     Active Substance: BISOPROLOL FUMARATE
     Indication: Atrial fibrillation
     Dosage: 5 MILLIGRAM, QD
     Route: 048
  17. OXYCODONE HYDROCHLORIDE [Concomitant]
     Active Substance: OXYCODONE HYDROCHLORIDE
     Indication: Product used for unknown indication
     Dosage: 50 MILLIGRAM, QD
     Route: 048

REACTIONS (4)
  - Interstitial lung disease [Fatal]
  - Neutrophil count decreased [Recovered/Resolved]
  - Malignant neoplasm progression [Unknown]
  - Performance status decreased [Unknown]

NARRATIVE: CASE EVENT DATE: 20210621
